FAERS Safety Report 24851885 (Version 1)
Quarter: 2025Q1

REPORT INFORMATION
  Report Type: Spontaneous
  Country: US (occurrence: US)
  Receive Date: 20250116
  Receipt Date: 20250116
  Transmission Date: 20250409
  Serious: No
  Sender: AMGEN
  Company Number: US-AMGEN-USASP2025007012

PATIENT
  Age: 64 Year
  Sex: Male

DRUGS (3)
  1. PREDNISONE [Suspect]
     Active Substance: PREDNISONE
     Indication: Retinal vasculitis
     Dosage: 3 MILLIGRAM, QD
     Route: 048
  2. ADALIMUMAB [Suspect]
     Active Substance: ADALIMUMAB
     Indication: Retinal vasculitis
     Route: 065
  3. CORTICOTROPIN [Concomitant]
     Active Substance: CORTICOTROPIN
     Indication: Retinal vasculitis
     Dosage: 80U, 3 TIMES/WK
     Route: 065

REACTIONS (5)
  - Oedema peripheral [Unknown]
  - Blood glucose increased [Unknown]
  - Infection [Unknown]
  - Off label use [Unknown]
  - Hypertension [Unknown]
